FAERS Safety Report 4323141-6 (Version None)
Quarter: 2004Q1

REPORT INFORMATION
  Report Type: 
  Country: None (occurrence: None)
  Receive Date: 20040322
  Receipt Date: 20040310
  Transmission Date: 20041129
  Serious: Yes (Disabling, Other)
  Sender: FDA-Public Use
  Company Number: 2003153944US

PATIENT
  Age: 49 Year
  Sex: Male
  Weight: 77.1 kg

DRUGS (1)
  1. ZYVOX [Suspect]
     Indication: STAPHYLOCOCCAL INFECTION
     Dosage: 600 MG, BID, ORAL
     Route: 048
     Dates: start: 20020301, end: 20021108

REACTIONS (18)
  - ANAEMIA VITAMIN B12 DEFICIENCY [None]
  - BALANCE DISORDER [None]
  - BLINDNESS [None]
  - DEMYELINATION [None]
  - DYSURIA [None]
  - EATING DISORDER [None]
  - ERECTILE DYSFUNCTION [None]
  - HYPOAESTHESIA [None]
  - IDIOSYNCRATIC DRUG REACTION [None]
  - INTESTINAL FUNCTIONAL DISORDER [None]
  - MULTIPLE SCLEROSIS [None]
  - NEUROPATHY PERIPHERAL [None]
  - OEDEMA PERIPHERAL [None]
  - OPTIC NEUROPATHY [None]
  - OVERDOSE [None]
  - PAIN [None]
  - PARAESTHESIA [None]
  - POLYNEUROPATHY [None]
